FAERS Safety Report 6938454-9 (Version None)
Quarter: 2010Q3

REPORT INFORMATION
  Report Type: 
  Country: None (occurrence: None)
  Receive Date: 20100824
  Receipt Date: 20100810
  Transmission Date: 20110219
  Serious: Yes (Other)
  Sender: FDA-Public Use
  Company Number: AT-CELGENEUS-009-21880-10080855

PATIENT
  Sex: Male

DRUGS (4)
  1. REVLIMID [Suspect]
     Indication: GLIOBLASTOMA MULTIFORME
     Route: 048
     Dates: start: 20071101
  2. REVLIMID [Suspect]
     Route: 048
     Dates: start: 20080101, end: 20100101
  3. GABAPENTINE [Concomitant]
     Indication: PRODUCT USED FOR UNKNOWN INDICATION
     Route: 065
  4. METOCLOPRAMIDE [Concomitant]
     Indication: NAUSEA
     Route: 065

REACTIONS (6)
  - BRAIN MASS [None]
  - HYDROCEPHALUS [None]
  - INSOMNIA [None]
  - LIVER DISORDER [None]
  - PRURITUS [None]
  - RESTLESSNESS [None]
